FAERS Safety Report 6877955-9 (Version None)
Quarter: 2010Q3

REPORT INFORMATION
  Report Type: 
  Country: None (occurrence: None)
  Receive Date: 20100727
  Receipt Date: 20100722
  Transmission Date: 20110219
  Serious: Yes (Other)
  Sender: FDA-Public Use
  Company Number: DE-ELI_LILLY_AND_COMPANY-DE201004003570

PATIENT
  Sex: Male

DRUGS (8)
  1. BYETTA [Suspect]
     Indication: DIABETES MELLITUS
     Dosage: 10 UG, UNKNOWN
     Route: 065
     Dates: start: 20070101
  2. PROTAPHANE /00646002/ [Concomitant]
     Dosage: UNK, UNKNOWN
     Route: 065
  3. LYRICA [Concomitant]
     Dosage: 75 MG, UNKNOWN
     Route: 065
  4. EYE DROPS [Concomitant]
     Dosage: UNK, UNKNOWN
     Route: 065
  5. IBUPROFEN TABLETS [Concomitant]
     Dosage: UNK, UNKNOWN
     Route: 065
  6. ANTIHYPERTENSIVES [Concomitant]
     Dosage: UNK, UNKNOWN
     Route: 065
  7. GLIBENESE [Concomitant]
     Dosage: 3.5 MG, 2/D
  8. METFORMIN HCL [Concomitant]
     Dosage: 850 MG, UNK

REACTIONS (3)
  - EYE DISORDER [None]
  - POLYNEUROPATHY [None]
  - RETINAL DETACHMENT [None]
